FAERS Safety Report 6276464-8 (Version None)
Quarter: 2009Q3

REPORT INFORMATION
  Report Type: 
  Country: None (occurrence: None)
  Receive Date: 20090722
  Receipt Date: 20071220
  Transmission Date: 20100115
  Serious: Yes (Life-Threatening, Other)
  Sender: FDA-Public Use
  Company Number: US-PFIZER INC-2005162672

PATIENT
  Sex: Male
  Weight: 62.14 kg

DRUGS (14)
  1. BLINDED *NO SUBJECT DRUG [Suspect]
     Indication: HIV INFECTION
     Dosage: UNK
     Route: 048
     Dates: start: 20050323
  2. BLINDED *PLACEBO [Suspect]
     Indication: HIV INFECTION
     Dosage: UNK
     Route: 048
     Dates: start: 20050323
  3. BLINDED MARAVIROC [Suspect]
     Indication: HIV INFECTION
     Dosage: UNK
     Route: 048
     Dates: start: 20050323
  4. BACTRIM DS [Concomitant]
     Route: 048
     Dates: start: 20030501
  5. CARDURA [Concomitant]
     Indication: BENIGN PROSTATIC HYPERPLASIA
     Route: 048
     Dates: start: 19970901
  6. MULTI-VITAMINS [Concomitant]
     Route: 048
  7. RHINOCORT [Concomitant]
     Indication: SEASONAL ALLERGY
     Route: 048
     Dates: start: 20050301
  8. ACIDOPHILUS [Concomitant]
     Indication: MEDICAL DIET
     Route: 048
     Dates: start: 20020101
  9. ZYRTEC [Concomitant]
     Route: 048
     Dates: start: 20040422
  10. PROTONIX [Concomitant]
     Indication: NAUSEA
     Route: 048
     Dates: start: 20050901, end: 20050901
  11. KALETRA [Concomitant]
     Route: 048
     Dates: start: 20041201
  12. ZIAGEN [Concomitant]
     Route: 048
     Dates: start: 20030601
  13. VIREAD [Concomitant]
     Route: 048
     Dates: start: 20030601
  14. VIDEX EC [Concomitant]
     Route: 048
     Dates: start: 20030601

REACTIONS (1)
  - OESOPHAGEAL CARCINOMA [None]
